FAERS Safety Report 21839070 (Version 2)
Quarter: 2023Q1

REPORT INFORMATION
  Report Type: Spontaneous
  Country: US (occurrence: US)
  Receive Date: 20230109
  Receipt Date: 20230309
  Transmission Date: 20230417
  Serious: Yes (Other)
  Sender: FDA-Public Use
  Company Number: US-BAYER-2023P001656

PATIENT
  Age: 27 Year
  Sex: Male

DRUGS (1)
  1. JIVI [Suspect]
     Active Substance: DAMOCTOCOG ALFA PEGOL
     Indication: Factor VIII deficiency
     Dosage: EVERY 3 DAYS
     Route: 042

REACTIONS (2)
  - Haemarthrosis [None]
  - Spontaneous haemorrhage [None]

NARRATIVE: CASE EVENT DATE: 20230101
